FAERS Safety Report 9470412 (Version 2)
Quarter: 2013Q3

REPORT INFORMATION
  Report Type: Spontaneous
  Country: US (occurrence: US)
  Receive Date: 20130822
  Receipt Date: 20130822
  Transmission Date: 20140515
  Serious: Yes (Other)
  Sender: FDA-Public Use
  Company Number: US-SANOFI-AVENTIS-2012SA032724

PATIENT
  Age: 56 Year
  Sex: Male
  Weight: 160.4 kg

DRUGS (21)
  1. MULTAQ [Suspect]
     Indication: ATRIAL FIBRILLATION
     Route: 048
     Dates: start: 20100129, end: 20120305
  2. ASPIRIN [Concomitant]
     Dates: start: 20081126
  3. DESLORATADINE [Concomitant]
     Indication: SEASONAL ALLERGY
     Dates: start: 20081126
  4. COLCHICINE [Concomitant]
     Indication: GOUT
  5. FUROSEMIDE [Concomitant]
     Indication: OEDEMA
     Dates: start: 20090218
  6. FUROSEMIDE [Concomitant]
     Indication: DYSPNOEA
     Dates: start: 20090218
  7. ATORVASTATIN [Concomitant]
     Indication: BLOOD CHOLESTEROL
     Dates: start: 20090619
  8. LISINOPRIL [Concomitant]
     Indication: HYPERTENSION
     Dates: start: 20081126
  9. LUNESTA [Concomitant]
     Indication: INSOMNIA
  10. METFORMIN [Concomitant]
     Dates: start: 20101029
  11. METOPROLOL SUCCINATE [Concomitant]
     Dates: start: 20100203
  12. MULTIVITAMINS [Concomitant]
     Dates: start: 20081126
  13. NASOCORT [Concomitant]
     Indication: HYPERSENSITIVITY
     Dates: start: 20081126
  14. POTASSIUM CHLORIDE [Concomitant]
     Indication: HYPOKALAEMIA
  15. SPIRONOLACTONE [Concomitant]
     Indication: OEDEMA
     Dates: start: 20090218
  16. SPIRONOLACTONE [Concomitant]
     Indication: DYSPNOEA
     Dates: start: 20090218
  17. WARFARIN [Concomitant]
     Indication: ATRIAL FIBRILLATION
     Dates: start: 20081126
  18. PACERONE [Concomitant]
     Indication: ATRIAL FIBRILLATION
     Dates: start: 20081126
  19. JANUVIA [Concomitant]
     Indication: DIABETES MELLITUS
     Dates: start: 20090619, end: 20091209
  20. CARTIA XT [Concomitant]
     Indication: ATRIAL FIBRILLATION
     Dates: start: 20081126, end: 20100203
  21. PIOGLITAZONE [Concomitant]
     Indication: DIABETES MELLITUS
     Dates: start: 20091209, end: 20110429

REACTIONS (1)
  - Liver function test abnormal [Recovered/Resolved]
